FAERS Safety Report 7320526-0 (Version None)
Quarter: 2011Q1

REPORT INFORMATION
  Report Type: 
  Country: None (occurrence: None)
  Receive Date: 20110228
  Receipt Date: 20110217
  Transmission Date: 20110831
  Serious: Yes (Hospitalization)
  Sender: FDA-Public Use
  Company Number: ES-JNJFOC-20110206015

PATIENT
  Age: 54 Year
  Sex: Female

DRUGS (6)
  1. LORMETAZEPAM [Interacting]
     Indication: PRODUCT USED FOR UNKNOWN INDICATION
     Route: 048
  2. DIAZEPAM [Interacting]
     Indication: PRODUCT USED FOR UNKNOWN INDICATION
     Route: 048
  3. METFORMIN [Concomitant]
     Indication: TYPE 2 DIABETES MELLITUS
     Route: 065
  4. DAFLON [Concomitant]
     Route: 065
  5. ZALDIAR [Suspect]
     Indication: PRODUCT USED FOR UNKNOWN INDICATION
     Route: 048
  6. OMEPRAZOLE [Concomitant]
     Indication: PROPHYLAXIS
     Route: 065

REACTIONS (5)
  - FALL [None]
  - RESPIRATORY DEPRESSION [None]
  - DRUG INTERACTION [None]
  - HEART RATE INCREASED [None]
  - DIZZINESS [None]
